FAERS Safety Report 13295750 (Version 2)
Quarter: 2017Q2

REPORT INFORMATION
  Report Type: Spontaneous
  Country: US (occurrence: US)
  Receive Date: 20170303
  Receipt Date: 20170405
  Transmission Date: 20170830
  Serious: Yes (Hospitalization)
  Sender: FDA-Public Use
  Company Number: US-ACTELION-A-US2017-150496

PATIENT
  Age: 70 Year
  Sex: Female
  Weight: 82.54 kg

DRUGS (2)
  1. BACTRIM [Suspect]
     Active Substance: SULFAMETHOXAZOLE\TRIMETHOPRIM
     Indication: PRODUCT USED FOR UNKNOWN INDICATION
     Route: 065
  2. OPSUMIT [Suspect]
     Active Substance: MACITENTAN
     Indication: PULMONARY HYPERTENSION
     Dosage: 10 MG, QD
     Route: 048

REACTIONS (6)
  - Drug hypersensitivity [Unknown]
  - Dehydration [Unknown]
  - Drug dose omission [Unknown]
  - Limb operation [Unknown]
  - Drug eruption [Unknown]
  - Influenza [Unknown]

NARRATIVE: CASE EVENT DATE: 20170222
